FAERS Safety Report 6264117-1 (Version None)
Quarter: 2009Q3

REPORT INFORMATION
  Report Type: 
  Country: None (occurrence: None)
  Receive Date: 20090710
  Receipt Date: 20090702
  Transmission Date: 20100115
  Serious: Yes (Death, Hospitalization)
  Sender: FDA-Public Use
  Company Number: US-EISAI INC.-E7272-00029-SPO-US

PATIENT
  Age: 53 Year
  Sex: Male

DRUGS (3)
  1. ONTAK [Suspect]
     Indication: PERIPHERAL T-CELL LYMPHOMA UNSPECIFIED RECURRENT
     Route: 041
  2. ONTAK [Suspect]
  3. DEXAMETHASONE [Concomitant]
     Route: 042

REACTIONS (2)
  - ACUTE GRAFT VERSUS HOST DISEASE [None]
  - SEPSIS [None]
